FAERS Safety Report 6047256-X (Version None)
Quarter: 2009Q1

REPORT INFORMATION
  Report Type: 
  Country: None (occurrence: None)
  Receive Date: 20090121
  Receipt Date: 20080131
  Transmission Date: 20090719
  Serious: Yes (Other)
  Sender: FDA-Public Use
  Company Number: 2007US002536

PATIENT
  Age: 79 Year
  Sex: Male

DRUGS (6)
  1. VESICARE [Suspect]
     Indication: DRUG USE FOR UNKNOWN INDICATION
     Dosage: 10 MG, UID/QD, ORAL
     Route: 048
     Dates: start: 20070919, end: 20071015
  2. VERAPAMIL [Concomitant]
  3. EYE DROPS (TETRYZOLINE HYDROCHLORIDE) [Concomitant]
  4. ZOCOR [Concomitant]
  5. FOSAMAX [Concomitant]
  6. VASOTEC [Concomitant]

REACTIONS (1)
  - VISION BLURRED [None]
